FAERS Safety Report 11794939 (Version 1)
Quarter: 2015Q4

REPORT INFORMATION
  Report Type: Spontaneous
  Country: US (occurrence: US)
  Receive Date: 20151202
  Receipt Date: 20151202
  Transmission Date: 20160305
  Serious: Yes (Other)
  Sender: FDA-Public Use
  Company Number: US-CELGENE-USA-2015116472

PATIENT

DRUGS (7)
  1. VIDAZA [Suspect]
     Active Substance: AZACITIDINE
     Route: 065
  2. MITOXANTRONE [Suspect]
     Active Substance: MITOXANTRONE HYDROCHLORIDE
     Indication: ACUTE MYELOID LEUKAEMIA
     Route: 065
  3. MITOXANTRONE [Suspect]
     Active Substance: MITOXANTRONE HYDROCHLORIDE
     Route: 065
  4. VIDAZA [Suspect]
     Active Substance: AZACITIDINE
     Route: 065
  5. HIDAC HIGH DOSE CYTARABINE [Suspect]
     Active Substance: CYTARABINE
     Route: 065
  6. VIDAZA [Suspect]
     Active Substance: AZACITIDINE
     Indication: ACUTE MYELOID LEUKAEMIA
     Route: 065
  7. HIDAC [Suspect]
     Active Substance: CYTARABINE
     Indication: ACUTE MYELOID LEUKAEMIA
     Dosage: 3GM/M2
     Route: 065

REACTIONS (4)
  - Bone marrow failure [Unknown]
  - Pneumonia [Unknown]
  - Acute hepatic failure [Unknown]
  - Febrile neutropenia [Unknown]
